FAERS Safety Report 6897255-0 (Version None)
Quarter: 2010Q3

REPORT INFORMATION
  Report Type: 
  Country: None (occurrence: None)
  Receive Date: 20100802
  Receipt Date: 20070521
  Transmission Date: 20110219
  Serious: Yes (Other)
  Sender: FDA-Public Use
  Company Number: US-PFIZER INC-2007028676

PATIENT
  Sex: Male
  Weight: 90.7 kg

DRUGS (1)
  1. LYRICA [Suspect]
     Indication: NEUROPATHY PERIPHERAL
     Dates: start: 20061113, end: 20070129

REACTIONS (3)
  - OSCILLOPSIA [None]
  - VISION BLURRED [None]
  - VISUAL ACUITY REDUCED [None]
